FAERS Safety Report 13111474 (Version 2)
Quarter: 2017Q1

REPORT INFORMATION
  Report Type: Spontaneous
  Country: SG (occurrence: SG)
  Receive Date: 20170112
  Receipt Date: 20170126
  Transmission Date: 20170428
  Serious: No
  Sender: FDA-Public Use
  Company Number: US-ASTRAZENECA-2017SE03145

PATIENT
  Age: 3 Month
  Sex: Male

DRUGS (3)
  1. SYNAGIS [Suspect]
     Active Substance: PALIVIZUMAB
     Indication: ANTIVIRAL PROPHYLAXIS
     Route: 030
     Dates: start: 20161011, end: 20161206
  2. AMOXYCILLIN [Concomitant]
     Active Substance: AMOXICILLIN
     Indication: SPLEEN DISORDER
     Route: 048
     Dates: start: 20160925, end: 20161224
  3. AMOXYCILLIN [Concomitant]
     Active Substance: AMOXICILLIN
     Indication: PROPHYLAXIS
     Route: 048
     Dates: start: 20160925, end: 20161224

REACTIONS (1)
  - No adverse event [Unknown]
